FAERS Safety Report 24811781 (Version 1)
Quarter: 2025Q1

REPORT INFORMATION
  Report Type: Spontaneous
  Country: US (occurrence: US)
  Receive Date: 20250106
  Receipt Date: 20250106
  Transmission Date: 20250409
  Serious: No
  Sender: BRAINTREE
  Company Number: US-BRAINTREE LABORATORIES, INC.-2023BTE00896

PATIENT
  Age: 73 Year
  Sex: Male

DRUGS (7)
  1. SUTAB [Suspect]
     Active Substance: MAGNESIUM SULFATE\POTASSIUM CHLORIDE\SODIUM SULFATE
     Indication: Colonoscopy
     Route: 048
     Dates: start: 20231204
  2. VITAMIN C [Concomitant]
     Active Substance: ASCORBIC ACID
  3. VITAMIN B12 [Concomitant]
     Active Substance: CYANOCOBALAMIN
  4. FISH OIL [Concomitant]
     Active Substance: FISH OIL
  5. FINASTERIDE [Concomitant]
     Active Substance: FINASTERIDE
  6. DIETARY SUPPLEMENT [Concomitant]
     Active Substance: DIETARY SUPPLEMENT
  7. CALCIUM [Concomitant]
     Active Substance: CALCIUM

REACTIONS (1)
  - Vomiting [Recovered/Resolved]

NARRATIVE: CASE EVENT DATE: 20231204
